FAERS Safety Report 7524732-1 (Version None)
Quarter: 2011Q2

REPORT INFORMATION
  Report Type: 
  Country: None (occurrence: None)
  Receive Date: 20110525
  Receipt Date: 20110513
  Transmission Date: 20111010
  Serious: Yes (Disabling, Other)
  Sender: FDA-Public Use
  Company Number: TRP_07742_2011

PATIENT
  Age: 43 Year
  Sex: Male

DRUGS (3)
  1. RIBAVIRIN [Suspect]
     Indication: HEPATITIS C
     Dosage: 1000 MG, PER DAY ORAL; 1000 MG, PER DAY ORAL
     Route: 048
  2. INTERFERON ALFA-2A (IFN-ALFA-2A) [Suspect]
     Indication: HEPATITIS C
     Dosage: 3 MILLION IU 3X/WEEK SUBCUTANEOUS, 3 MILLION IU 3X/WEEK SUBCUTANEOUS
     Route: 058
  3. INTERFERON ALFA-2A (IFN-ALFA-2A) [Suspect]
     Indication: HEPATITIS C
     Dosage: 3 MILLION IU 3X/WEEK SUBCUTANEOUS, 3 MILLION IU 3X/WEEK SUBCUTANEOUS
     Route: 058

REACTIONS (11)
  - FEAR [None]
  - FEELING GUILTY [None]
  - IMPAIRED WORK ABILITY [None]
  - SUICIDE ATTEMPT [None]
  - MYALGIA [None]
  - PYREXIA [None]
  - MALAISE [None]
  - FATIGUE [None]
  - ECONOMIC PROBLEM [None]
  - THERAPEUTIC RESPONSE DECREASED [None]
  - DEPRESSION [None]
